FAERS Safety Report 10376004 (Version 1)
Quarter: 2014Q3

REPORT INFORMATION
  Report Type: Spontaneous
  Country: US (occurrence: US)
  Receive Date: 20140811
  Receipt Date: 20140811
  Transmission Date: 20150326
  Serious: Yes (Hospitalization)
  Sender: FDA-Public Use
  Company Number: US-B.I. PHARMACEUTICALS,INC./RIDGEFIELD-2014-BI-35912BP

PATIENT
  Age: 80 Year
  Sex: Male

DRUGS (8)
  1. SOTALOL. [Concomitant]
     Active Substance: SOTALOL
     Route: 065
  2. INSULIN [Concomitant]
     Active Substance: INSULIN NOS
     Route: 065
  3. DIOVAN [Concomitant]
     Active Substance: VALSARTAN
     Route: 065
  4. FISH OIL [Concomitant]
     Active Substance: FISH OIL
     Route: 065
  5. PRADAXA [Suspect]
     Active Substance: DABIGATRAN ETEXILATE MESYLATE
     Indication: ATRIAL FIBRILLATION
     Dosage: 300 MG
     Route: 065
     Dates: end: 20140308
  6. LIPITOR [Concomitant]
     Active Substance: ATORVASTATIN CALCIUM
     Route: 065
  7. ALLOPURINOL. [Concomitant]
     Active Substance: ALLOPURINOL
     Route: 065
  8. RAMIPRIL. [Concomitant]
     Active Substance: RAMIPRIL
     Route: 065

REACTIONS (4)
  - Haemorrhagic anaemia [Recovered/Resolved]
  - Cellulitis [Unknown]
  - Renal failure acute [Recovered/Resolved]
  - Upper gastrointestinal haemorrhage [Recovered/Resolved]

NARRATIVE: CASE EVENT DATE: 20140308
